FAERS Safety Report 19464186 (Version 1)
Quarter: 2021Q2

REPORT INFORMATION
  Report Type: Spontaneous
  Country: CN (occurrence: CN)
  Receive Date: 20210627
  Receipt Date: 20210627
  Transmission Date: 20210717
  Serious: Yes (Hospitalization)
  Sender: FDA-Public Use
  Company Number: NVSC2021CN141506

PATIENT
  Age: 66 Year
  Sex: Male
  Weight: 60 kg

DRUGS (4)
  1. ISOSORBIDE MONONITRATE. [Concomitant]
     Active Substance: ISOSORBIDE MONONITRATE
     Indication: CORONARY ARTERY DISEASE
     Dosage: 20 MG, QD
     Route: 048
     Dates: start: 20170601, end: 20210616
  2. ROSUVASTATIN CALCIUM. [Suspect]
     Active Substance: ROSUVASTATIN CALCIUM
     Indication: CORONARY ARTERY DISEASE
     Dosage: 10 MG, QD
     Route: 048
     Dates: start: 20170601, end: 20210616
  3. BETALOC [Concomitant]
     Active Substance: METOPROLOL
     Dosage: 25 MG, BID
     Route: 065
  4. METOPROLOL SUCCINATE. [Suspect]
     Active Substance: METOPROLOL SUCCINATE
     Indication: CORONARY ARTERY DISEASE
     Dosage: 47.5 MG, QD
     Route: 048
     Dates: start: 20170601, end: 20210616

REACTIONS (1)
  - Drug-induced liver injury [Recovering/Resolving]

NARRATIVE: CASE EVENT DATE: 20210609
